FAERS Safety Report 9274454 (Version 2)
Quarter: 2015Q1

REPORT INFORMATION
  Report Type: Report from Study
  Country: KR (occurrence: KR)
  Receive Date: 20130507
  Receipt Date: 20150216
  Transmission Date: 20150721
  Serious: No
  Sender: FDA-Public Use
  Company Number: KR-MERCK-1305KOR000051

PATIENT
  Age: 31 Year
  Sex: Male
  Weight: 65.8 kg

DRUGS (5)
  1. ASENAPINE MALEATE-SCHIZOPHRENIA [Suspect]
     Active Substance: ASENAPINE MALEATE
     Dosage: 10 MG, BID
     Route: 060
     Dates: start: 20121212, end: 20130204
  2. ASENAPINE MALEATE-SCHIZOPHRENIA [Suspect]
     Active Substance: ASENAPINE MALEATE
     Dosage: 5 MG, BID
     Route: 060
     Dates: start: 20130204, end: 20130304
  3. ASENAPINE MALEATE-SCHIZOPHRENIA [Suspect]
     Active Substance: ASENAPINE MALEATE
     Indication: SCHIZOPHRENIA
     Dosage: 5 MG, BID
     Route: 060
     Dates: start: 20120612, end: 20121130
  4. LORAZEPAM. [Concomitant]
     Active Substance: LORAZEPAM
     Indication: INSOMNIA
     Dosage: 0.5 MG, HS
     Route: 048
     Dates: start: 20130107
  5. ASENAPINE MALEATE-SCHIZOPHRENIA [Suspect]
     Active Substance: ASENAPINE MALEATE
     Dosage: 10 MG, BID
     Route: 060
     Dates: start: 20130304

REACTIONS (1)
  - Medication error [Unknown]

NARRATIVE: CASE EVENT DATE: 20130204
